FAERS Safety Report 15223533 (Version 1)
Quarter: 2018Q3

REPORT INFORMATION
  Report Type: Spontaneous
  Country: IT (occurrence: IT)
  Receive Date: 20180731
  Receipt Date: 20180731
  Transmission Date: 20181010
  Serious: Yes (Hospitalization)
  Sender: FDA-Public Use
  Company Number: IT-MYLANLABS-2018M1056382

PATIENT
  Age: 92 Year
  Sex: Female

DRUGS (5)
  1. METFORAL [Concomitant]
     Active Substance: METFORMIN HYDROCHLORIDE
     Indication: PRODUCT USED FOR UNKNOWN INDICATION
  2. EUTIROX [Concomitant]
     Active Substance: LEVOTHYROXINE SODIUM
     Indication: PRODUCT USED FOR UNKNOWN INDICATION
  3. MICARDIS 80MG TABLETS [Concomitant]
     Indication: PRODUCT USED FOR UNKNOWN INDICATION
  4. BRUFEN [Suspect]
     Active Substance: IBUPROFEN
     Indication: BACK PAIN
     Dosage: 1200 MG, QD
     Route: 048
     Dates: start: 20171001, end: 20171011
  5. CARDIOASPIRIN [Concomitant]
     Active Substance: ASPIRIN
     Indication: PRODUCT USED FOR UNKNOWN INDICATION

REACTIONS (4)
  - Gastritis [Unknown]
  - Vomiting [Unknown]
  - Back pain [Unknown]
  - Abdominal pain upper [Unknown]

NARRATIVE: CASE EVENT DATE: 20171011
